FAERS Safety Report 25679487 (Version 1)
Quarter: 2025Q3

REPORT INFORMATION
  Report Type: Spontaneous
  Country: CN (occurrence: CN)
  Receive Date: 20250814
  Receipt Date: 20250814
  Transmission Date: 20251020
  Serious: Yes (Other)
  Sender: ASTELLAS
  Company Number: CN-ASTELLAS-2025-AER-044310

PATIENT
  Age: 70 Year
  Sex: Male
  Weight: 72.0 kg

DRUGS (1)
  1. ISAVUCONAZONIUM SULFATE [Suspect]
     Active Substance: ISAVUCONAZONIUM SULFATE
     Indication: Pulmonary mucormycosis
     Route: 042
     Dates: start: 20250708, end: 20250708

REACTIONS (4)
  - Thrombophlebitis [Recovering/Resolving]
  - Device related thrombosis [Recovering/Resolving]
  - Decreased appetite [Recovering/Resolving]
  - Drug level increased [Unknown]

NARRATIVE: CASE EVENT DATE: 20250715
